FAERS Safety Report 10219650 (Version 1)
Quarter: 2014Q1

REPORT INFORMATION
  Report Type: Spontaneous
  Country: US (occurrence: None)
  Receive Date: 20140306
  Receipt Date: 20140306
  Transmission Date: 20141002
  Serious: Yes (Hospitalization)
  Sender: FDA-Public Use
  Company Number: 163-21880-13101171

PATIENT
  Age: 67 Year
  Sex: Female
  Weight: 47.63 kg

DRUGS (7)
  1. REVLIMID (LENALIDOMIDE) (10 MILLIGRAM, CAPSULES) [Suspect]
     Indication: PLASMA CELL MYELOMA
     Dosage: 1 IN 1 D
     Route: 048
     Dates: start: 200812
  2. DEXAMETHAZONE [Concomitant]
  3. COMPAZINE (PROCHLORPERAZINE EDISYLATE) [Concomitant]
  4. XANAX (ALPRAZOLAM) [Concomitant]
  5. VICODIN [Concomitant]
  6. PROCRIT (ERYTHROPOIETIN) [Concomitant]
  7. ZOMETA (ZOLEDRONIC ACID) [Concomitant]

REACTIONS (1)
  - Anaemia [None]
